FAERS Safety Report 19095167 (Version 1)
Quarter: 2021Q2

REPORT INFORMATION
  Report Type: Spontaneous
  Country: US (occurrence: US)
  Receive Date: 20210405
  Receipt Date: 20210405
  Transmission Date: 20210717
  Serious: Yes (Hospitalization)
  Sender: FDA-Public Use
  Company Number: US-BAXTER-2021BAX006524

PATIENT
  Age: 40 Year
  Sex: Female

DRUGS (3)
  1. CYCLOPHOSPHAMIDE FOR INJECTION, USP [Suspect]
     Active Substance: CYCLOPHOSPHAMIDE
     Indication: BREAST CANCER
     Dosage: EVERY THREE WEEKS FOR A TOTAL OF SIX CYCLES
     Route: 065
     Dates: start: 19800811, end: 198012
  2. DOXORUBICIN [Suspect]
     Active Substance: DOXORUBICIN
     Indication: BREAST CANCER
     Dosage: EVERY THREE WEEKS FOR A TOTAL OF SIX CYCLES
     Route: 065
     Dates: start: 19800811, end: 198012
  3. 5?FLUOROURACIL [Suspect]
     Active Substance: FLUOROURACIL
     Indication: BREAST CANCER
     Dosage: EVERY THREE WEEKS FOR A TOTAL OF SIX CYCLES
     Route: 065
     Dates: start: 19800811, end: 198012

REACTIONS (1)
  - Osteonecrosis [Unknown]

NARRATIVE: CASE EVENT DATE: 19840621
